FAERS Safety Report 25958946 (Version 1)
Quarter: 2025Q4

REPORT INFORMATION
  Report Type: Spontaneous
  Country: US (occurrence: US)
  Receive Date: 20251025
  Receipt Date: 20251025
  Transmission Date: 20260118
  Serious: Yes (Other)
  Sender: AMGEN
  Company Number: US-AMGEN-USASP2025208375

PATIENT
  Age: 52 Year
  Sex: Male

DRUGS (5)
  1. TEPEZZA [Suspect]
     Active Substance: TEPROTUMUMAB-TRBW
     Indication: Endocrine ophthalmopathy
     Dosage: UNK, (FIRST CYCLE FIRST DOSE)
     Route: 065
  2. TEPEZZA [Suspect]
     Active Substance: TEPROTUMUMAB-TRBW
     Dosage: UNK, (FIRST CYCLE FIFTH DOSE)
     Route: 065
  3. TEPEZZA [Suspect]
     Active Substance: TEPROTUMUMAB-TRBW
     Dosage: UNK, (SECOND CYCLE FIRST DOSE)
     Route: 065
  4. TEPEZZA [Suspect]
     Active Substance: TEPROTUMUMAB-TRBW
     Dosage: UNK, (SECOND CYCLE THIRD DOSE)
     Route: 065
  5. PREDNISONE [Suspect]
     Active Substance: PREDNISONE
     Indication: Product used for unknown indication
     Dosage: UNK, (FOR THREE WEEKS)
     Route: 048

REACTIONS (8)
  - Endocrine ophthalmopathy [Not Recovered/Not Resolved]
  - Erectile dysfunction [Unknown]
  - Off label use [Unknown]
  - Blood testosterone decreased [Unknown]
  - Libido decreased [Unknown]
  - Asthenia [Unknown]
  - Muscle spasms [Unknown]
  - Fatigue [Unknown]
